FAERS Safety Report 24042544 (Version 1)
Quarter: 2024Q3

REPORT INFORMATION
  Report Type: Spontaneous
  Country: US (occurrence: US)
  Receive Date: 20240702
  Receipt Date: 20240702
  Transmission Date: 20241016
  Serious: No
  Sender: INTRA-CELLULAR THERAPIES
  Company Number: US-INTRA-CELLULAR THERAPIES, INC.-2024ICT00560

PATIENT
  Sex: Female

DRUGS (5)
  1. CAPLYTA [Suspect]
     Active Substance: LUMATEPERONE
     Indication: Bipolar disorder
     Dosage: 42 MG
     Dates: start: 20240113
  2. CAPLYTA [Suspect]
     Active Substance: LUMATEPERONE
     Indication: Attention deficit hyperactivity disorder
  3. CAPLYTA [Suspect]
     Active Substance: LUMATEPERONE
     Indication: Generalised anxiety disorder
  4. CAPLYTA [Suspect]
     Active Substance: LUMATEPERONE
     Indication: Drug dependence
  5. UNSPECIFIED MULTIPLE MEDICATIONS [Concomitant]

REACTIONS (1)
  - Acne [Unknown]

NARRATIVE: CASE EVENT DATE: 20240101
